FAERS Safety Report 10014265 (Version 1)
Quarter: 2014Q1

REPORT INFORMATION
  Report Type: Spontaneous
  Country: US (occurrence: US)
  Receive Date: 20140317
  Receipt Date: 20140317
  Transmission Date: 20141002
  Serious: Yes (Hospitalization)
  Sender: FDA-Public Use
  Company Number: US-BIOGENIDEC-2014BI023299

PATIENT
  Sex: 0

DRUGS (5)
  1. TECFIDERA [Suspect]
     Indication: RELAPSING-REMITTING MULTIPLE SCLEROSIS
     Route: 048
  2. NEURONTIN [Concomitant]
  3. BACLOFEN [Concomitant]
  4. LORTAB [Concomitant]
  5. XANAX [Concomitant]

REACTIONS (1)
  - Adverse drug reaction [Recovered/Resolved]
